FAERS Safety Report 23380754 (Version 2)
Quarter: 2024Q1

REPORT INFORMATION
  Report Type: Other
  Country: US (occurrence: None)
  Receive Date: 20240109
  Receipt Date: 20240110
  Transmission Date: 20240410
  Serious: No
  Sender: FDA-Public Use
  Company Number: US-ROCHE-3485219

PATIENT
  Age: 53 Year
  Sex: Female
  Weight: 90.8 kg

DRUGS (4)
  1. OCREVUS [Suspect]
     Active Substance: OCRELIZUMAB
     Indication: Multiple sclerosis
     Dosage: SUBSEQUENT DOSE 600 MG EVERY 6 MONTHS, LAST DOSE OF OCREVUS WAS ADMINISTERED ON AN UNKNOWN DATE IN /
     Route: 042
     Dates: start: 202102
  2. CELLCEPT [Suspect]
     Active Substance: MYCOPHENOLATE MOFETIL
     Indication: Systemic lupus erythematosus
     Dosage: 3000 MG A DAY?ONGOING: NO
     Route: 048
     Dates: start: 201912, end: 2021
  3. KEPPRA [Concomitant]
     Active Substance: LEVETIRACETAM
     Indication: Epilepsy
     Route: 048
  4. LEVETIRACETAM [Concomitant]
     Active Substance: LEVETIRACETAM

REACTIONS (10)
  - Sensory disturbance [Not Recovered/Not Resolved]
  - Herpes zoster [Unknown]
  - Back pain [Unknown]
  - Oral herpes [Recovering/Resolving]
  - Rash [Recovering/Resolving]
  - Arthropod bite [Recovered/Resolved]
  - Systemic lupus erythematosus [Not Recovered/Not Resolved]
  - Off label use [Unknown]
  - Multiple sclerosis [Unknown]
  - Hypothyroidism [Unknown]

NARRATIVE: CASE EVENT DATE: 20191201
